FAERS Safety Report 9222384 (Version 1)
Quarter: 2013Q2

REPORT INFORMATION
  Report Type: Spontaneous
  Country: US (occurrence: US)
  Receive Date: 20130410
  Receipt Date: 20130410
  Transmission Date: 20140414
  Serious: No
  Sender: FDA-Public Use
  Company Number: US-B.I. PHARMACEUTICALS,INC./RIDGEFIELD-2013-BI-08501BP

PATIENT
  Sex: Female

DRUGS (3)
  1. SPIRIVA [Suspect]
     Indication: ASTHMA LATE ONSET
     Dosage: 18 MCG
     Route: 055
     Dates: start: 20130220
  2. DULERA [Concomitant]
     Indication: ASTHMA LATE ONSET
     Route: 055
  3. FLONASE [Concomitant]
     Indication: RHINITIS ALLERGIC
     Route: 045

REACTIONS (2)
  - Faeces discoloured [Not Recovered/Not Resolved]
  - Diarrhoea [Not Recovered/Not Resolved]
